FAERS Safety Report 9933923 (Version 1)
Quarter: 2014Q1

REPORT INFORMATION
  Report Type: Report from Study
  Country: US (occurrence: US)
  Receive Date: 20140228
  Receipt Date: 20140228
  Transmission Date: 20141002
  Serious: No
  Sender: FDA-Public Use
  Company Number: US-ABBVIE-13P-163-1176045-00

PATIENT
  Age: 47 Year
  Sex: Male
  Weight: 108.96 kg

DRUGS (5)
  1. ANDROGEL [Suspect]
     Indication: BLOOD TESTOSTERONE DECREASED
     Route: 061
     Dates: start: 201309, end: 20131129
  2. ANDROGEL [Suspect]
     Route: 061
     Dates: start: 20131130
  3. ANDROGEL [Suspect]
     Indication: PRODUCT USED FOR UNKNOWN INDICATION
     Route: 061
     Dates: start: 201306, end: 201309
  4. CRESTOR [Concomitant]
     Indication: BLOOD CHOLESTEROL INCREASED
  5. LOSARTAN [Concomitant]
     Indication: HYPERTENSION

REACTIONS (6)
  - Hypertension [Not Recovered/Not Resolved]
  - Anxiety [Not Recovered/Not Resolved]
  - Insomnia [Not Recovered/Not Resolved]
  - Hyperhidrosis [Not Recovered/Not Resolved]
  - Arrhythmia [Not Recovered/Not Resolved]
  - Therapy change [Not Recovered/Not Resolved]
